FAERS Safety Report 7968729-6 (Version None)
Quarter: 2011Q4

REPORT INFORMATION
  Report Type: 
  Country: None (occurrence: None)
  Receive Date: 20111208
  Receipt Date: 20111129
  Transmission Date: 20120403
  Serious: Yes (Congenital Anomaly)
  Sender: FDA-Public Use
  Company Number: FR-GDP-11412410

PATIENT
  Sex: Female

DRUGS (1)
  1. EPIDUO (ADAPALENSE) (BENZOYL PEROXIDE) [Suspect]
     Indication: ACNE
     Dosage: 1 DF QD TRANSPLACENTAL
     Route: 064
     Dates: start: 20110114, end: 20110610

REACTIONS (3)
  - ABORTION INDUCED [None]
  - MATERNAL DRUGS AFFECTING FOETUS [None]
  - FALLOT'S TETRALOGY [None]
